FAERS Safety Report 19874226 (Version 1)
Quarter: 2021Q3

REPORT INFORMATION
  Report Type: Spontaneous
  Country: US (occurrence: US)
  Receive Date: 20210922
  Receipt Date: 20210922
  Transmission Date: 20211014
  Serious: Yes (Other)
  Sender: FDA-Public Use
  Company Number: US-SA-2021SA309742

PATIENT
  Sex: Male

DRUGS (7)
  1. DOCETAXEL. [Suspect]
     Active Substance: DOCETAXEL
     Dosage: UNK
     Dates: start: 202102, end: 202104
  2. LEUPRORELIN ACETATE [Suspect]
     Active Substance: LEUPROLIDE ACETATE
     Dosage: UNK
  3. RADIUM [Suspect]
     Active Substance: RADIUM
     Dosage: UNK
  4. ENZALUTAMIDE [Suspect]
     Active Substance: ENZALUTAMIDE
     Dosage: UNK
  5. ABIRATERONE ACETATE. [Suspect]
     Active Substance: ABIRATERONE ACETATE
     Dosage: UNK
  6. RUBRACA [Suspect]
     Active Substance: RUCAPARIB CAMSYLATE
     Dosage: UNK
     Dates: start: 201905, end: 201906
  7. CABAZITAXEL [Suspect]
     Active Substance: CABAZITAXEL
     Dosage: UNK

REACTIONS (2)
  - Hormone-refractory prostate cancer [Unknown]
  - Prostate cancer metastatic [Unknown]
